FAERS Safety Report 19086168 (Version 2)
Quarter: 2021Q2

REPORT INFORMATION
  Report Type: Spontaneous
  Country: JP (occurrence: JP)
  Receive Date: 20210402
  Receipt Date: 20210412
  Transmission Date: 20210717
  Serious: Yes (Other)
  Sender: FDA-Public Use
  Company Number: JP-PFIZER INC-2021326676

PATIENT
  Age: 70 Year
  Sex: Male

DRUGS (3)
  1. CLARITHROMYCIN. [Suspect]
     Active Substance: CLARITHROMYCIN
     Dosage: 400 MG, DAILY
     Dates: end: 20201114
  2. VFEND [Suspect]
     Active Substance: VORICONAZOLE
     Dosage: 200 MG, 2X/DAY
     Route: 048
     Dates: start: 20201116, end: 20201128
  3. CLARITHROMYCIN. [Suspect]
     Active Substance: CLARITHROMYCIN
     Dosage: 200 MG, DAILY
     Dates: start: 20201115, end: 20201125

REACTIONS (5)
  - Colour blindness [Unknown]
  - Hypoaesthesia [Unknown]
  - Blood creatine phosphokinase increased [Unknown]
  - Dizziness [Unknown]
  - Rhabdomyolysis [Unknown]

NARRATIVE: CASE EVENT DATE: 20201125
